FAERS Safety Report 8337263-6 (Version None)
Quarter: 2012Q2

REPORT INFORMATION
  Report Type: 
  Country: None (occurrence: None)
  Receive Date: 20120504
  Receipt Date: 20120424
  Transmission Date: 20120825
  Serious: Yes (Hospitalization)
  Sender: FDA-Public Use
  Company Number: US-JNJFOC-20111204926

PATIENT
  Sex: Female
  Weight: 51.6 kg

DRUGS (21)
  1. REMICADE [Suspect]
     Indication: COLITIS ULCERATIVE
     Route: 042
     Dates: start: 20090804, end: 20091022
  2. OXYCODONE HCL [Concomitant]
  3. LOPERAMIDE HCL [Concomitant]
  4. ZOFRAN [Concomitant]
  5. VALIUM [Concomitant]
  6. FENTANYL CITRATE [Concomitant]
  7. PROBIOTICS [Concomitant]
     Indication: INFLAMMATORY BOWEL DISEASE
  8. FOLIC ACID [Concomitant]
  9. DICYCLOMINE [Concomitant]
  10. CITALOPRAM HYDROBROMIDE [Concomitant]
  11. IBUPROFEN [Concomitant]
  12. CEFOXITIN [Concomitant]
  13. TORADOL [Concomitant]
  14. TACROLIMUS [Concomitant]
     Indication: INFLAMMATORY BOWEL DISEASE
  15. DILAUDID [Concomitant]
  16. MESALAMINE [Concomitant]
     Indication: INFLAMMATORY BOWEL DISEASE
  17. BUDESONIDE [Concomitant]
     Indication: INFLAMMATORY BOWEL DISEASE
  18. COLACE [Concomitant]
  19. ACETAMINOPHEN [Concomitant]
  20. MAGNESIUM CITRATE [Concomitant]
  21. SACCHAROMYCES BOULARDII [Concomitant]

REACTIONS (1)
  - COLITIS ULCERATIVE [None]
